FAERS Safety Report 7580787-X (Version None)
Quarter: 2011Q2

REPORT INFORMATION
  Report Type: 
  Country: None (occurrence: None)
  Receive Date: 20110629
  Receipt Date: 20110628
  Transmission Date: 20111010
  Serious: Yes (Other)
  Sender: FDA-Public Use
  Company Number: US-PFIZER INC-2011144352

PATIENT
  Sex: Female
  Weight: 81.633 kg

DRUGS (1)
  1. MEDROL [Suspect]
     Indication: ASTHMA
     Dosage: UNK
     Dates: start: 19980101, end: 20101201

REACTIONS (3)
  - CEREBROVASCULAR ACCIDENT [None]
  - NASOPHARYNGITIS [None]
  - SINUSITIS [None]
